FAERS Safety Report 8179085-5 (Version None)
Quarter: 2012Q1

REPORT INFORMATION
  Report Type: 
  Country: None (occurrence: None)
  Receive Date: 20120302
  Receipt Date: 20120219
  Transmission Date: 20120608
  Serious: Yes (Other)
  Sender: FDA-Public Use
  Company Number: CA-RANBAXY-2012US-53152

PATIENT
  Sex: Male

DRUGS (8)
  1. CEFUROXIME [Concomitant]
     Indication: PRODUCT USED FOR UNKNOWN INDICATION
     Dosage: UNK
     Route: 065
  2. MORPHINE [Interacting]
     Dosage: 2 MG, HOURLY AS NEEDED
     Route: 042
  3. METHADON HCL TAB [Interacting]
     Indication: DRUG DEPENDENCE
     Dosage: 50 MG, QD
     Route: 048
  4. MORPHINE [Interacting]
     Indication: ANKLE FRACTURE
     Route: 048
  5. CLINDAMYCIN [Concomitant]
     Indication: PRODUCT USED FOR UNKNOWN INDICATION
     Route: 065
  6. ACETAMINOPHEN W/ CODEINE [Interacting]
     Indication: ANKLE FRACTURE
     Dosage: 325/30 MG, 1-2 TABLET 4 HOURLY AS NEEDED
     Route: 048
  7. LEVOMEPROMAZINE [Interacting]
     Indication: ANKLE FRACTURE
     Dosage: UNK,
     Route: 048
  8. CIPROFLOXACIN [Suspect]
     Indication: PNEUMONIA ASPIRATION
     Dosage: 400 MG, BID
     Route: 042

REACTIONS (2)
  - RESPIRATORY DEPRESSION [None]
  - DRUG INTERACTION [None]
